FAERS Safety Report 5689847-1 (Version None)
Quarter: 2008Q2

REPORT INFORMATION
  Report Type: 
  Country: None (occurrence: None)
  Receive Date: 20080401
  Receipt Date: 20080320
  Transmission Date: 20081010
  Serious: Yes (Other)
  Sender: FDA-Public Use
  Company Number: ES-RANBAXY-2008RR-13766

PATIENT

DRUGS (8)
  1. IBUPROFEN TABLETS BP 200MG [Suspect]
  2. NEVRALGIN [Suspect]
  3. KETANOV [Suspect]
  4. ACETAMINOPHEN [Concomitant]
     Dosage: 1 G, UNK
     Route: 048
  5. MELOXICAM [Concomitant]
     Dosage: 3.5 MG, UNK
     Route: 048
  6. MELOXICAM [Concomitant]
     Dosage: 7 MG, UNK
     Route: 048
  7. MELOXICAM [Concomitant]
     Dosage: 15 MG, UNK
     Route: 048
  8. ETORICOXIB [Concomitant]
     Route: 048

REACTIONS (2)
  - ANALGESIC ASTHMA SYNDROME [None]
  - BRONCHOSPASM [None]
